FAERS Safety Report 24016723 (Version 2)
Quarter: 2024Q3

REPORT INFORMATION
  Report Type: Spontaneous
  Country: JP (occurrence: None)
  Receive Date: 20240626
  Receipt Date: 20240703
  Transmission Date: 20241017
  Serious: Yes (Other)
  Sender: ASTRAZENECA
  Company Number: 2024A143693

PATIENT
  Age: 80 Year
  Sex: Male

DRUGS (5)
  1. DAPAGLIFLOZIN [Suspect]
     Active Substance: DAPAGLIFLOZIN
     Indication: Chronic kidney disease
     Route: 048
     Dates: start: 20240401
  2. AMLODIPINE [Concomitant]
     Active Substance: AMLODIPINE BESYLATE
  3. FEBUXOSTAT [Concomitant]
     Active Substance: FEBUXOSTAT
  4. LOSARTAN POTASSIUM [Concomitant]
     Active Substance: LOSARTAN POTASSIUM
  5. SILODOSIN [Concomitant]
     Active Substance: SILODOSIN

REACTIONS (1)
  - Interleukin-2 receptor increased [Unknown]

NARRATIVE: CASE EVENT DATE: 20240601
